FAERS Safety Report 19040989 (Version 2)
Quarter: 2022Q3

REPORT INFORMATION
  Report Type: Report from Study
  Country: US (occurrence: US)
  Receive Date: 20210322
  Receipt Date: 20220902
  Transmission Date: 20221027
  Serious: No
  Sender: FDA-Public Use
  Company Number: US-GILEAD-2021-0521785

PATIENT
  Age: 32 Year
  Sex: Female

DRUGS (3)
  1. AMBRISENTAN [Suspect]
     Active Substance: AMBRISENTAN
     Indication: Pulmonary arterial hypertension
     Dosage: UNK
     Route: 065
  2. BACTRIM [Suspect]
     Active Substance: SULFAMETHOXAZOLE\TRIMETHOPRIM
     Indication: Product used for unknown indication
     Route: 065
  3. TYVASO [Suspect]
     Active Substance: TREPROSTINIL
     Indication: Pulmonary arterial hypertension
     Dosage: 12 UG, QID
     Route: 055
     Dates: start: 20210115

REACTIONS (4)
  - Periorbital oedema [Not Recovered/Not Resolved]
  - Pruritus [Unknown]
  - Candida infection [Not Recovered/Not Resolved]
  - Oedema peripheral [Unknown]

NARRATIVE: CASE EVENT DATE: 20210101
